FAERS Safety Report 15191782 (Version 1)
Quarter: 2018Q3

REPORT INFORMATION
  Report Type: Spontaneous
  Country: US (occurrence: US)
  Receive Date: 20180626
  Receipt Date: 20180626
  Transmission Date: 20181010
  Serious: Yes (Disabling)
  Sender: FDA-Public Use
  Company Number: None

PATIENT
  Age: 46 Year
  Sex: Female
  Weight: 81 kg

DRUGS (5)
  1. HUMIRA [Suspect]
     Active Substance: ADALIMUMAB
     Indication: PROSTATIC SPECIFIC ANTIGEN
  2. COPAXEN [Concomitant]
  3. XELJANZ RX [Concomitant]
  4. FLEXERIL [Concomitant]
     Active Substance: CYCLOBENZAPRINE HYDROCHLORIDE
  5. THRIVE [Concomitant]
     Active Substance: NICOTINE

REACTIONS (5)
  - Feeling abnormal [None]
  - Motion sickness [None]
  - Headache [None]
  - Nausea [None]
  - Psoriatic arthropathy [None]

NARRATIVE: CASE EVENT DATE: 20160801
